FAERS Safety Report 9920621 (Version 2)
Quarter: 2014Q1

REPORT INFORMATION
  Report Type: Spontaneous
  Country: US (occurrence: US)
  Receive Date: 20140224
  Receipt Date: 20140224
  Transmission Date: 20141002
  Serious: Yes (Hospitalization)
  Sender: FDA-Public Use
  Company Number: US-ONYX-2014-0305

PATIENT
  Age: 64 Year
  Sex: Male

DRUGS (3)
  1. KYPROLIS [Suspect]
     Indication: PLASMA CELL MYELOMA
     Route: 042
     Dates: start: 20130815
  2. KYPROLIS [Suspect]
     Route: 042
     Dates: start: 20130919, end: 20131219
  3. DEXAMETHASONE [Concomitant]
     Indication: PRODUCT USED FOR UNKNOWN INDICATION

REACTIONS (4)
  - Dehydration [Unknown]
  - Renal failure [Unknown]
  - Metabolic acidosis [Unknown]
  - Hypocalcaemia [Unknown]
